FAERS Safety Report 6522921-6 (Version None)
Quarter: 2009Q4

REPORT INFORMATION
  Report Type: 
  Country: None (occurrence: None)
  Receive Date: 20091214
  Receipt Date: 20090506
  Transmission Date: 20100525
  Serious: Yes (Other)
  Sender: FDA-Public Use
  Company Number: 632208

PATIENT
  Age: 55 Year
  Sex: Male
  Weight: 97.1 kg

DRUGS (3)
  1. PEGASYS [Suspect]
     Indication: HEPATITIS C
     Dosage: 180 UG 1 PER WEEK SUBCUTANEOUS
     Route: 058
     Dates: start: 20050326, end: 20050722
  2. COPEGUS [Suspect]
     Indication: HEPATITIS C
     Dosage: 600 MG 2 PER DAY ORAL
     Route: 048
     Dates: start: 20050326, end: 20050722
  3. INFERGEN [Suspect]

REACTIONS (9)
  - ANXIETY [None]
  - ARTHRALGIA [None]
  - DEPRESSION [None]
  - FATIGUE [None]
  - HEADACHE [None]
  - HEPATITIS [None]
  - HEPATITIS C [None]
  - IRRITABILITY [None]
  - PANIC ATTACK [None]
